FAERS Safety Report 6202171-3 (Version None)
Quarter: 2009Q2

REPORT INFORMATION
  Report Type: 
  Country: None (occurrence: None)
  Receive Date: 20090526
  Receipt Date: 20090511
  Transmission Date: 20091009
  Serious: Yes (Other)
  Sender: FDA-Public Use
  Company Number: EG-JNJFOC-20090402106

PATIENT
  Sex: Male

DRUGS (5)
  1. REMICADE [Suspect]
     Route: 042
  2. REMICADE [Suspect]
     Route: 042
  3. REMICADE [Suspect]
     Indication: INFLAMMATORY BOWEL DISEASE
     Route: 042
  4. PENTASA [Concomitant]
  5. IMURAN [Concomitant]

REACTIONS (4)
  - ATYPICAL MYCOBACTERIAL INFECTION [None]
  - LYMPHADENOPATHY [None]
  - PYREXIA [None]
  - TUBERCULOSIS [None]
